FAERS Safety Report 7818492-4 (Version None)
Quarter: 2011Q4

REPORT INFORMATION
  Report Type: 
  Country: None (occurrence: None)
  Receive Date: 20111017
  Receipt Date: 20111012
  Transmission Date: 20120403
  Serious: Yes (Death, Other)
  Sender: FDA-Public Use
  Company Number: IE-AMGEN-IRLSP2011047523

PATIENT
  Age: 75 Year
  Sex: Female

DRUGS (8)
  1. DELTACORTRIL [Concomitant]
     Indication: PRODUCT USED FOR UNKNOWN INDICATION
  2. IMURAN [Concomitant]
     Indication: PRODUCT USED FOR UNKNOWN INDICATION
  3. ARANESP [Suspect]
     Indication: RENAL FAILURE CHRONIC
     Dosage: 50 MUG, Q2WK
     Route: 058
     Dates: start: 20101007
  4. GALFER [Concomitant]
     Indication: PRODUCT USED FOR UNKNOWN INDICATION
  5. ASPIRIN [Concomitant]
     Indication: PRODUCT USED FOR UNKNOWN INDICATION
  6. BUMETANIDE [Concomitant]
     Indication: PRODUCT USED FOR UNKNOWN INDICATION
  7. ARANESP [Suspect]
     Dosage: 50 MG, QWK
     Dates: end: 20110915
  8. METOPROLOL TARTRATE [Concomitant]
     Indication: PRODUCT USED FOR UNKNOWN INDICATION

REACTIONS (2)
  - HAEMOGLOBIN DECREASED [None]
  - RENAL FAILURE CHRONIC [None]
